FAERS Safety Report 8277564-3 (Version None)
Quarter: 2012Q2

REPORT INFORMATION
  Report Type: 
  Country: None (occurrence: None)
  Receive Date: 20120412
  Receipt Date: 20120404
  Transmission Date: 20120825
  Serious: Yes (Death)
  Sender: FDA-Public Use
  Company Number: JP-CELGENEUS-087-50794-12040420

PATIENT
  Sex: Female
  Weight: 38 kg

DRUGS (13)
  1. OMEPRAZOLE [Concomitant]
     Route: 065
     Dates: start: 20110401
  2. ITRACONAZOLE [Concomitant]
     Route: 065
     Dates: start: 20110401
  3. TEICOPLANIN [Concomitant]
     Route: 065
     Dates: end: 20111104
  4. COTRIM [Concomitant]
     Route: 065
     Dates: start: 20110401
  5. FUNGUARD [Concomitant]
     Route: 065
     Dates: start: 20111119
  6. VFEND [Concomitant]
     Route: 065
     Dates: end: 20111104
  7. VIDAZA [Suspect]
     Dosage: 75 MILLIGRAM/SQ. METER
     Route: 041
     Dates: start: 20110413, end: 20110419
  8. VIDAZA [Suspect]
     Dosage: 75 MILLIGRAM/SQ. METER
     Route: 041
     Dates: start: 20111117, end: 20111123
  9. METFORMIN HCL [Concomitant]
     Route: 065
     Dates: end: 20111104
  10. PAZUCROSS [Concomitant]
     Route: 065
     Dates: start: 20111119
  11. VIDAZA [Suspect]
     Dosage: 75 MILLIGRAM/SQ. METER
     Route: 041
     Dates: start: 20110510, end: 20110516
  12. VIDAZA [Suspect]
     Dosage: 75 MILLIGRAM/SQ. METER
     Route: 041
     Dates: start: 20111027, end: 20111102
  13. PREDNISOLONE [Concomitant]
     Route: 065
     Dates: start: 20110401

REACTIONS (2)
  - RENAL IMPAIRMENT [None]
  - BILIRUBIN CONJUGATED INCREASED [None]
